FAERS Safety Report 17039566 (Version 7)
Quarter: 2022Q4

REPORT INFORMATION
  Report Type: Report from Study
  Country: US (occurrence: None)
  Receive Date: 20191115
  Receipt Date: 20221017
  Transmission Date: 20230113
  Serious: Yes (Death, Life-Threatening, Hospitalization, Other)
  Sender: FDA-Public Use
  Company Number: US-ROCHE-2459754

PATIENT
  Age: 65 Year
  Sex: Male
  Weight: 77.1 kg

DRUGS (6)
  1. OBINUTUZUMAB [Suspect]
     Active Substance: OBINUTUZUMAB
     Indication: Follicular lymphoma
     Dosage: ON 30/SEP/2019, HE RECEIVED RECENT DOSE OF OBINUTUZUMAB.
     Route: 042
     Dates: start: 20190617, end: 20190930
  2. PREDNISONE [Suspect]
     Active Substance: PREDNISONE
     Indication: Follicular lymphoma
     Dosage: ON 04/OCT/2019, HE RECEIVED RECENT DOSE OF PREDNISONE.
     Route: 048
     Dates: start: 20190617, end: 20191004
  3. CYCLOPHOSPHAMIDE [Suspect]
     Active Substance: CYCLOPHOSPHAMIDE
     Indication: Follicular lymphoma
     Dosage: ON 30/SEP/2019, HE RECEIVED RECENT DOSE OF CYCLOPHOSPHAMIDE.
     Route: 042
     Dates: start: 20190617, end: 20190930
  4. DOXORUBICIN HYDROCHLORIDE [Suspect]
     Active Substance: DOXORUBICIN HYDROCHLORIDE
     Indication: Follicular lymphoma
     Dosage: ON 30/SEP/2019, HE RECEIVED RECENT DOSE OF DOXORUBICIN HYDROCHLORIDE.
     Route: 042
     Dates: start: 20190617, end: 20190930
  5. VINCRISTINE SULFATE [Suspect]
     Active Substance: VINCRISTINE SULFATE
     Indication: Follicular lymphoma
     Dosage: ON 30/SEP/2019, HE RECEIVED RECENT DOSE OF VINCRISTINE SULPHATE
     Route: 042
     Dates: start: 20190617, end: 20190930
  6. ASPIRIN [Suspect]
     Active Substance: ASPIRIN
     Indication: Follicular lymphoma
     Route: 065

REACTIONS (9)
  - Sepsis [Recovered/Resolved]
  - Pneumonia [Fatal]
  - Small intestinal haemorrhage [Recovered/Resolved]
  - Hypoxia [Unknown]
  - Neutrophil count decreased [Recovered/Resolved]
  - Platelet count decreased [Unknown]
  - Pneumonitis [Unknown]
  - Respiratory failure [Fatal]
  - Pneumothorax [Unknown]

NARRATIVE: CASE EVENT DATE: 20191011
